FAERS Safety Report 20305027 (Version 1)
Quarter: 2022Q1

REPORT INFORMATION
  Report Type: Spontaneous
  Country: GB (occurrence: GB)
  Receive Date: 20220106
  Receipt Date: 20220106
  Transmission Date: 20220423
  Serious: Yes (Life-Threatening, Hospitalization, Other)
  Sender: FDA-Public Use
  Company Number: None

PATIENT
  Age: 70 Year
  Sex: Male

DRUGS (2)
  1. RAMIPRIL [Suspect]
     Active Substance: RAMIPRIL
     Indication: Ill-defined disorder
     Dosage: 10 MILLIGRAM, QD
     Route: 048
  2. CANAGLIFLOZIN [Suspect]
     Active Substance: CANAGLIFLOZIN
     Indication: Ill-defined disorder
     Dosage: 300 MILLIGRAM, QD
     Route: 048
     Dates: end: 20200528

REACTIONS (9)
  - Diabetic ketoacidosis [Unknown]
  - Acute kidney injury [Unknown]
  - Mobility decreased [Unknown]
  - Respiratory rate increased [Unknown]
  - Cerebrovascular accident [Unknown]
  - Facial paralysis [Unknown]
  - Malaise [Unknown]
  - Diarrhoea [Unknown]
  - Asthenia [Unknown]

NARRATIVE: CASE EVENT DATE: 20200530
